FAERS Safety Report 8869126 (Version 1)
Quarter: 2012Q4

REPORT INFORMATION
  Report Type: 
  Country: US (occurrence: US)
  Receive Date: 20121023
  Receipt Date: 20121023
  Transmission Date: 20130627
  Serious: No
  Sender: FDA-Public Use
  Company Number: US-AMGEN-USASP2012053731

PATIENT
  Age: 57 Year
  Sex: Female
  Weight: 123.36 kg

DRUGS (11)
  1. ENBREL [Suspect]
     Indication: PRODUCT USED FOR UNKNOWN INDICATION
     Dosage: 50 mg, qwk
     Route: 058
  2. LUMIGAN [Concomitant]
     Dosage: Sol 0.01%
  3. COMBIGAN [Concomitant]
     Dosage: sol 0.2/0.5%
  4. ROPINIROLE [Concomitant]
     Dosage: 0.25 mg, UNK
  5. METFORMIN [Concomitant]
     Dosage: 500 mg, UNK
  6. LOSARTAN + HIDROCLOROTIAZIDA [Concomitant]
     Dosage: tab 100-12.5
  7. BYSTOLIC [Concomitant]
     Dosage: 10 mg, UNK
  8. ADVIL                              /00044201/ [Concomitant]
     Dosage: 200 mg, UNK
  9. VITAMIN D /00107901/ [Concomitant]
     Dosage: 1000 unit, UNK
  10. FOLIC ACID [Concomitant]
     Dosage: UNK
  11. ZEGERID                            /00661201/ [Concomitant]
     Dosage: cap 20-1100

REACTIONS (1)
  - Injection site urticaria [Unknown]
